FAERS Safety Report 9264017 (Version 1)
Quarter: 2013Q1

REPORT INFORMATION
  Report Type: Spontaneous
  Country: US (occurrence: None)
  Receive Date: 20121212
  Receipt Date: 20121212
  Transmission Date: 20140127
  Serious: No
  Sender: FDA-Public Use
  Company Number: 1210USA008269

PATIENT
  Age: 62 Year
  Sex: Male

DRUGS (5)
  1. VICTRELIS [Suspect]
     Indication: HEPATITIS C
     Route: 048
     Dates: start: 20120731
  2. PEGASYS [Suspect]
  3. RIBASPHERE [Suspect]
  4. TRAMADO HYDROCHLORIDE [Concomitant]
  5. NEXIUM [Concomitant]

REACTIONS (4)
  - Influenza like illness [None]
  - Chest pain [None]
  - Fatigue [None]
  - Dizziness [None]
